FAERS Safety Report 15683993 (Version 2)
Quarter: 2018Q4

REPORT INFORMATION
  Report Type: Spontaneous
  Country: BG (occurrence: BG)
  Receive Date: 20181204
  Receipt Date: 20181205
  Transmission Date: 20190205
  Serious: Yes (Other)
  Sender: FDA-Public Use
  Company Number: BG-ROCHE-2222944

PATIENT
  Age: 28 Year
  Sex: Male

DRUGS (2)
  1. ACTILYSE [Suspect]
     Active Substance: ALTEPLASE
     Indication: ISCHAEMIC STROKE
     Route: 042
  2. METFORMIN [Concomitant]
     Active Substance: METFORMIN HYDROCHLORIDE
     Route: 065

REACTIONS (8)
  - Altered state of consciousness [Unknown]
  - Lip oedema [Unknown]
  - Somnolence [Unknown]
  - Facial paresis [Unknown]
  - Gingival bleeding [Unknown]
  - Tongue oedema [Unknown]
  - Motor dysfunction [Unknown]
  - Bulbar palsy [Unknown]
